FAERS Safety Report 10650114 (Version 1)
Quarter: 2014Q4

REPORT INFORMATION
  Report Type: Spontaneous
  Country: US (occurrence: US)
  Receive Date: 20141212
  Receipt Date: 20141212
  Transmission Date: 20150529
  Serious: No
  Sender: FDA-Public Use
  Company Number: US-GLAXOSMITHKLINE-US2014GSK033360

PATIENT
  Age: 91 Year
  Sex: Male

DRUGS (10)
  1. ENALAPRIL [Concomitant]
     Active Substance: ENALAPRIL
  2. LAMICTAL XR [Suspect]
     Active Substance: LAMOTRIGINE
     Dosage: 100 MG, QD
     Dates: start: 201404
  3. PROBIOTIC [Concomitant]
     Active Substance: PROBIOTICS NOS
  4. LIPITOR [Concomitant]
     Active Substance: ATORVASTATIN CALCIUM
  5. CRESTOR [Concomitant]
     Active Substance: ROSUVASTATIN CALCIUM
  6. ATENOLOL. [Concomitant]
     Active Substance: ATENOLOL
  7. PRIMIDONE. [Concomitant]
     Active Substance: PRIMIDONE
  8. ASPIRIN. [Concomitant]
     Active Substance: ASPIRIN
  9. MULTIVITAMINS [Concomitant]
     Active Substance: VITAMINS
  10. LAMICTAL XR [Suspect]
     Active Substance: LAMOTRIGINE
     Indication: SEIZURE
     Dosage: TITRATED TO 200 MG DAILY
     Route: 048
     Dates: start: 201309

REACTIONS (3)
  - Abnormal dreams [Not Recovered/Not Resolved]
  - Urine odour abnormal [Not Recovered/Not Resolved]
  - Insomnia [Not Recovered/Not Resolved]

NARRATIVE: CASE EVENT DATE: 201309
